FAERS Safety Report 9868495 (Version 2)
Quarter: 2014Q1

REPORT INFORMATION
  Report Type: Spontaneous
  Country: US (occurrence: US)
  Receive Date: 20140204
  Receipt Date: 20140228
  Transmission Date: 20141002
  Serious: Yes (Other)
  Sender: FDA-Public Use
  Company Number: US-PFIZER INC-2014031142

PATIENT
  Age: 82 Year
  Sex: Male

DRUGS (3)
  1. CELEBREX [Suspect]
     Indication: ARTHRALGIA
     Dosage: 200 MG, 1X/DAY
     Route: 048
     Dates: start: 2011, end: 20140131
  2. CELEBREX [Suspect]
     Indication: ARTHRITIS
  3. CIPRO [Concomitant]
     Dosage: 200 MG, 2X/DAY

REACTIONS (2)
  - Renal failure [Recovered/Resolved]
  - Prostatic disorder [Unknown]
